FAERS Safety Report 4820741-1 (Version None)
Quarter: 2005Q4

REPORT INFORMATION
  Report Type: 
  Country: None (occurrence: None)
  Receive Date: 20051104
  Receipt Date: 20050414
  Transmission Date: 20060501
  Serious: Yes (Hospitalization, Disabling)
  Sender: FDA-Public Use
  Company Number: US-MERCK-0504USA02909

PATIENT
  Age: 56 Year
  Sex: Male
  Weight: 114 kg

DRUGS (9)
  1. VIOXX [Suspect]
     Indication: ARTHRITIS
     Route: 048
     Dates: start: 20000901, end: 20040701
  2. NORVASC [Concomitant]
     Indication: BLOOD PRESSURE
     Route: 065
     Dates: start: 20010330
  3. PAXIL [Concomitant]
     Indication: PANIC ATTACK
     Route: 065
     Dates: start: 20040101
  4. PRILOSEC [Concomitant]
     Indication: GASTRIC DISORDER
     Route: 065
  5. NEXIUM [Concomitant]
     Indication: GASTRIC DISORDER
     Route: 065
  6. PREVACID [Concomitant]
     Indication: GASTRIC DISORDER
     Route: 065
  7. GLUCOSAMINE [Concomitant]
     Route: 065
  8. CHONDROITIN [Concomitant]
     Route: 065
  9. VITAMINS (UNSPECIFIED) [Concomitant]
     Route: 065

REACTIONS (6)
  - CHEST PAIN [None]
  - GASTRIC DISORDER [None]
  - HYPERTENSION [None]
  - MYOCARDIAL INFARCTION [None]
  - OBESITY [None]
  - PANIC DISORDER [None]
